FAERS Safety Report 6748188-1 (Version None)
Quarter: 2010Q2

REPORT INFORMATION
  Report Type: 
  Country: None (occurrence: None)
  Receive Date: 20100531
  Receipt Date: 20100517
  Transmission Date: 20101027
  Serious: Yes (Hospitalization, Other)
  Sender: FDA-Public Use
  Company Number: US-ELI_LILLY_AND_COMPANY-US201005004959

PATIENT
  Sex: Female

DRUGS (7)
  1. CYMBALTA [Suspect]
     Indication: DEPRESSION
     Dosage: 60 MG, DAILY (1/D)
     Dates: start: 20080101, end: 20090101
  2. CYMBALTA [Suspect]
     Dosage: 90 MG, DAILY (1/D)
     Dates: start: 20090101
  3. VERAPAMIL [Concomitant]
  4. DIOVAN [Concomitant]
  5. LEVOTHYROXINE SODIUM [Concomitant]
  6. LORTAB [Concomitant]
  7. KLONOPIN [Concomitant]

REACTIONS (7)
  - DRUG INEFFECTIVE [None]
  - GASTRIC BANDING [None]
  - INTENTIONAL DRUG MISUSE [None]
  - RENAL INJURY [None]
  - ROAD TRAFFIC ACCIDENT [None]
  - SURGERY [None]
  - WRONG TECHNIQUE IN DRUG USAGE PROCESS [None]
